FAERS Safety Report 16456206 (Version 1)
Quarter: 2019Q2

REPORT INFORMATION
  Report Type: Spontaneous
  Country: IT (occurrence: IT)
  Receive Date: 20190620
  Receipt Date: 20190620
  Transmission Date: 20190711
  Serious: Yes (Other)
  Sender: FDA-Public Use
  Company Number: IT-AUROBINDO-AUR-APL-2019-030896

PATIENT

DRUGS (2)
  1. CETIRIZINE [Suspect]
     Active Substance: CETIRIZINE HYDROCHLORIDE
     Indication: PAIN IN EXTREMITY
     Dosage: 320 MILLIGRAM, TOTAL
     Route: 048
     Dates: start: 20190302, end: 20190303
  2. IBUPROFEN. [Suspect]
     Active Substance: IBUPROFEN
     Indication: PAIN IN EXTREMITY
     Dosage: 2400 MILLIGRAM, TOTAL
     Route: 048
     Dates: start: 20190302, end: 20190303

REACTIONS (4)
  - Micturition disorder [Recovering/Resolving]
  - Drug abuse [Recovering/Resolving]
  - Dry mouth [Recovering/Resolving]
  - Gastrointestinal hypomotility [Recovering/Resolving]

NARRATIVE: CASE EVENT DATE: 20190302
